FAERS Safety Report 12754979 (Version 1)
Quarter: 2016Q3

REPORT INFORMATION
  Report Type: Spontaneous
  Country: JP (occurrence: JP)
  Receive Date: 20160916
  Receipt Date: 20160916
  Transmission Date: 20161109
  Serious: Yes (Other)
  Sender: FDA-Public Use
  Company Number: JP-ELI_LILLY_AND_COMPANY-JP201609005962

PATIENT
  Age: 91 Year
  Sex: Female

DRUGS (5)
  1. ARTIST [Suspect]
     Active Substance: CARVEDILOL
     Dosage: 1.25 MG, QD
     Route: 065
  2. PRASUGREL HYDROCHLORIDE [Suspect]
     Active Substance: PRASUGREL HYDROCHLORIDE
     Dosage: 2.5 MG, QD
     Route: 065
  3. BAYASPIRIN [Concomitant]
     Active Substance: ASPIRIN
     Dosage: UNK, UNKNOWN
     Route: 065
  4. PRASUGREL HYDROCHLORIDE [Suspect]
     Active Substance: PRASUGREL HYDROCHLORIDE
     Indication: PERCUTANEOUS CORONARY INTERVENTION
     Dosage: 3.75 MG, QD
     Route: 065
  5. ARTIST [Suspect]
     Active Substance: CARVEDILOL
     Indication: PERCUTANEOUS CORONARY INTERVENTION
     Dosage: 2.5 MG, QD
     Route: 065

REACTIONS (1)
  - Internal haemorrhage [Recovering/Resolving]
